FAERS Safety Report 19409017 (Version 3)
Quarter: 2021Q3

REPORT INFORMATION
  Report Type: Spontaneous
  Country: JP (occurrence: JP)
  Receive Date: 20210613
  Receipt Date: 20210914
  Transmission Date: 20211014
  Serious: Yes (Other)
  Sender: FDA-Public Use
  Company Number: NVSJ2021JP008453

PATIENT
  Age: 74 Year
  Sex: Male

DRUGS (4)
  1. LEVOFLOXACINE [Concomitant]
     Active Substance: LEVOFLOXACIN
     Dosage: 1 DRP, QID
     Route: 047
     Dates: start: 20210503, end: 20210509
  2. LEVOFLOXACINE [Concomitant]
     Active Substance: LEVOFLOXACIN
     Indication: INFECTION PROPHYLAXIS
     Dosage: 1 DRP, QID
     Route: 047
     Dates: start: 20210405, end: 20210410
  3. BEOVU [Suspect]
     Active Substance: BROLUCIZUMAB-DBLL
     Indication: AGE-RELATED MACULAR DEGENERATION
     Dosage: 6 MG
     Route: 031
     Dates: start: 20210408, end: 20210408
  4. BEOVU [Suspect]
     Active Substance: BROLUCIZUMAB-DBLL
     Dosage: 6 MG
     Route: 031
     Dates: start: 20210506, end: 20210506

REACTIONS (3)
  - Retinal vascular occlusion [Recovering/Resolving]
  - Retinal perivascular sheathing [Recovering/Resolving]
  - Retinal aneurysm [Recovering/Resolving]

NARRATIVE: CASE EVENT DATE: 20210507
